FAERS Safety Report 8320511-6 (Version None)
Quarter: 2012Q2

REPORT INFORMATION
  Report Type: 
  Country: None (occurrence: None)
  Receive Date: 20120427
  Receipt Date: 20120427
  Transmission Date: 20120825
  Serious: Yes (Other)
  Sender: FDA-Public Use
  Company Number: None

PATIENT
  Age: 38 Year
  Sex: Female
  Weight: 79.378 kg

DRUGS (2)
  1. CYMBALTA [Concomitant]
     Indication: DEPRESSION
  2. CYMBALTA [Suspect]
     Indication: POSTPARTUM STRESS DISORDER
     Dosage: 120 MG
     Route: 048
     Dates: start: 20110814, end: 20120423

REACTIONS (5)
  - TREMOR [None]
  - PARAESTHESIA [None]
  - FEELING ABNORMAL [None]
  - MEMORY IMPAIRMENT [None]
  - MUSCLE SPASMS [None]
